FAERS Safety Report 19872811 (Version 1)
Quarter: 2021Q3

REPORT INFORMATION
  Report Type: Spontaneous
  Country: BR (occurrence: BR)
  Receive Date: 20210922
  Receipt Date: 20210922
  Transmission Date: 20211014
  Serious: Yes (Hospitalization, Other)
  Sender: FDA-Public Use
  Company Number: BR-PFIZER INC-202101197031

PATIENT
  Age: 73 Year
  Sex: Male
  Weight: 165 kg

DRUGS (1)
  1. TAZOCIN [Suspect]
     Active Substance: PIPERACILLIN SODIUM\TAZOBACTAM SODIUM
     Indication: URINARY TRACT INFECTION
     Dosage: UNK

REACTIONS (8)
  - Hypothermia [Unknown]
  - Extremity necrosis [Unknown]
  - Hyperkalaemia [Unknown]
  - Adrenal insufficiency [Unknown]
  - Musculoskeletal disorder [Unknown]
  - Somnolence [Unknown]
  - Hyponatraemia [Unknown]
  - Depressed level of consciousness [Unknown]

NARRATIVE: CASE EVENT DATE: 202102
